FAERS Safety Report 16134414 (Version 2)
Quarter: 2019Q2

REPORT INFORMATION
  Report Type: Spontaneous
  Country: US (occurrence: US)
  Receive Date: 20190329
  Receipt Date: 20190514
  Transmission Date: 20190711
  Serious: No
  Sender: FDA-Public Use
  Company Number: US-BAYER-2019-059410

PATIENT
  Age: 77 Year
  Sex: Female
  Weight: 82 kg

DRUGS (5)
  1. METOPROLOL. [Concomitant]
     Active Substance: METOPROLOL
  2. FLECAINIDE [Concomitant]
     Active Substance: FLECAINIDE
  3. MIRALAX [Suspect]
     Active Substance: POLYETHYLENE GLYCOL 3350
     Indication: GASTROINTESTINAL DISORDER
     Dosage: 1 DF, QD
     Route: 048
     Dates: start: 20190322
  4. DILTIAZEMUM [Concomitant]
  5. XARELTO [Concomitant]
     Active Substance: RIVAROXABAN

REACTIONS (6)
  - Product taste abnormal [Unknown]
  - Product odour abnormal [None]
  - Incorrect product administration duration [Unknown]
  - Throat irritation [Recovered/Resolved]
  - Poor quality product administered [Unknown]
  - Feeling abnormal [Recovered/Resolved]
